FAERS Safety Report 13065741 (Version 2)
Quarter: 2017Q1

REPORT INFORMATION
  Report Type: Spontaneous
  Country: BR (occurrence: BR)
  Receive Date: 20161227
  Receipt Date: 20170112
  Transmission Date: 20170428
  Serious: Yes (Other)
  Sender: FDA-Public Use
  Company Number: BR-ASTRAZENECA-2016SF34677

PATIENT
  Age: 55 Year
  Sex: Female

DRUGS (5)
  1. CIPROFIBRATE [Concomitant]
     Active Substance: CIPROFIBRATE
  2. ROSUVASTATIN. [Concomitant]
     Active Substance: ROSUVASTATIN
     Indication: BLOOD CHOLESTEROL INCREASED
     Dosage: ACHE MANUFACTURER
  3. FORXIGA [Suspect]
     Active Substance: DAPAGLIFLOZIN
     Indication: DIABETES MELLITUS
     Dosage: 10.0MG UNKNOWN
     Route: 048
     Dates: start: 2014
  4. ATENOLOL + LOSARTAN + HCT (COMPOUNDED DRUG) [Concomitant]
     Indication: HYPERTENSION
  5. GLIFAGE [Concomitant]
     Active Substance: METFORMIN HYDROCHLORIDE
     Indication: DIABETES MELLITUS

REACTIONS (4)
  - Haematuria [Recovered/Resolved]
  - Weight decreased [Not Recovered/Not Resolved]
  - Abdominal pain [Recovered/Resolved]
  - Uterine cyst [Not Recovered/Not Resolved]

NARRATIVE: CASE EVENT DATE: 2014
